FAERS Safety Report 11474883 (Version 2)
Quarter: 2015Q3

REPORT INFORMATION
  Report Type: Report from Study
  Country: FR (occurrence: FR)
  Receive Date: 20150908
  Receipt Date: 20150910
  Transmission Date: 20151125
  Serious: Yes (Other)
  Sender: FDA-Public Use
  Company Number: FR-JAZZ-2014-FR-013459

PATIENT
  Age: 47 Year
  Sex: Female

DRUGS (10)
  1. PRITOR [Concomitant]
     Active Substance: TELMISARTAN
     Indication: PRODUCT USED FOR UNKNOWN INDICATION
     Dosage: UNK
  2. SEROPLEX [Concomitant]
     Active Substance: ESCITALOPRAM OXALATE
     Indication: PRODUCT USED FOR UNKNOWN INDICATION
     Dosage: UNK
  3. KERLONE [Concomitant]
     Active Substance: BETAXOLOL HYDROCHLORIDE
     Indication: PRODUCT USED FOR UNKNOWN INDICATION
     Dosage: UNK
  4. LYSANXIA [Concomitant]
     Active Substance: PRAZEPAM
     Indication: PRODUCT USED FOR UNKNOWN INDICATION
     Dosage: UNK
  5. MODIODAL [Concomitant]
     Active Substance: MODAFINIL
     Indication: PRODUCT USED FOR UNKNOWN INDICATION
     Dosage: UNK
     Route: 048
  6. XYREM [Suspect]
     Active Substance: SODIUM OXYBATE
     Indication: NARCOLEPSY
     Dosage: 2.25 G, BID
     Route: 048
     Dates: start: 20141009, end: 201410
  7. DEPAMIDE [Concomitant]
     Active Substance: VALPROMIDE
     Indication: PRODUCT USED FOR UNKNOWN INDICATION
     Dosage: UNK
  8. XYREM [Suspect]
     Active Substance: SODIUM OXYBATE
     Dosage: 3 G, BID
     Route: 048
     Dates: start: 20141024, end: 20141114
  9. PROTHIADEN [Concomitant]
     Active Substance: DOTHIEPIN HYDROCHLORIDE
     Indication: PRODUCT USED FOR UNKNOWN INDICATION
     Dosage: UNK
  10. XYREM [Suspect]
     Active Substance: SODIUM OXYBATE
     Dosage: 2.25 G, BID
     Route: 048
     Dates: start: 20141116

REACTIONS (16)
  - Agitation [Recovered/Resolved]
  - Headache [Not Recovered/Not Resolved]
  - Vision blurred [Not Recovered/Not Resolved]
  - Dyspnoea [Recovered/Resolved]
  - Disorientation [Recovered/Resolved]
  - Vomiting [Recovered/Resolved]
  - Muscular weakness [Recovered/Resolved]
  - Nocturnal dyspnoea [Not Recovered/Not Resolved]
  - Dizziness [Not Recovered/Not Resolved]
  - Nausea [Not Recovered/Not Resolved]
  - Amnesia [Recovered/Resolved]
  - Hallucination [Recovered/Resolved]
  - Fatigue [Not Recovered/Not Resolved]
  - Suffocation feeling [Not Recovered/Not Resolved]
  - Screaming [Recovered/Resolved]
  - Musculoskeletal pain [Unknown]

NARRATIVE: CASE EVENT DATE: 20141009
